FAERS Safety Report 14831379 (Version 1)
Quarter: 2018Q2

REPORT INFORMATION
  Report Type: Spontaneous
  Country: NL (occurrence: NL)
  Receive Date: 20180501
  Receipt Date: 20180501
  Transmission Date: 20180711
  Serious: Yes (Other)
  Sender: FDA-Public Use
  Company Number: NL-SUN PHARMACEUTICAL INDUSTRIES LTD-2018R1-171206

PATIENT
  Age: 6 Week
  Sex: Male
  Weight: 4 kg

DRUGS (3)
  1. OCTREOTIDE. [Suspect]
     Active Substance: OCTREOTIDE
     Indication: CHYLOTHORAX
     Dosage: 1 DF, 10 MG/KG/UUR EN LATER IN MEERDERE STAPPEN AFGEBOUWD TOT STOP
     Dates: start: 20180222, end: 20180319
  2. TPVNON SPECIFIED TOTALE PARENTERALE VOEDING [Concomitant]
     Indication: PRODUCT USED FOR UNKNOWN INDICATION
     Dosage: UNK
     Route: 065
  3. MORFINE [Concomitant]
     Active Substance: MORPHINE
     Indication: PRODUCT USED FOR UNKNOWN INDICATION
     Dosage: UNK
     Route: 065

REACTIONS (1)
  - Necrotising colitis [Recovering/Resolving]

NARRATIVE: CASE EVENT DATE: 20180316
